FAERS Safety Report 22351796 (Version 1)
Quarter: 2023Q2

REPORT INFORMATION
  Report Type: Spontaneous
  Country: US (occurrence: None)
  Receive Date: 20230522
  Receipt Date: 20230522
  Transmission Date: 20230721
  Serious: Yes (Disabling)
  Sender: FDA-Public Use
  Company Number: None

PATIENT
  Age: 74 Year
  Sex: Female
  Weight: 78.47 kg

DRUGS (14)
  1. MODERNA COVID-19 VACCINE [Suspect]
     Active Substance: ELASOMERAN
  2. CARVEDILOL [Suspect]
     Active Substance: CARVEDILOL
  3. VERAPAMIL [Suspect]
     Active Substance: VERAPAMIL HYDROCHLORIDE
  4. CHLORTHALIDONE [Suspect]
     Active Substance: CHLORTHALIDONE
  5. DOXAZOSIN [Suspect]
     Active Substance: DOXAZOSIN MESYLATE
  6. ISOSORBIDE DINITRATE [Suspect]
     Active Substance: ISOSORBIDE DINITRATE
     Indication: Drug therapy
     Dates: start: 202210, end: 202305
  7. loop recordr [Concomitant]
  8. ventolin inhailer [Concomitant]
  9. LISINOPRIL [Concomitant]
     Active Substance: LISINOPRIL
  10. LOSARTAN [Concomitant]
     Active Substance: LOSARTAN
  11. METOPROLOL [Concomitant]
     Active Substance: METOPROLOL
  12. Colnoidine [Concomitant]
  13. plaxiv [Concomitant]
  14. ASPIRIN [Concomitant]
     Active Substance: ASPIRIN

REACTIONS (7)
  - Blood pressure increased [None]
  - Asthma [None]
  - Peripheral swelling [None]
  - Faeces discoloured [None]
  - Dizziness [None]
  - Headache [None]
  - Arthritis [None]
